FAERS Safety Report 24531032 (Version 5)
Quarter: 2025Q2

REPORT INFORMATION
  Report Type: Report from Study
  Country: CA (occurrence: CA)
  Receive Date: 20241022
  Receipt Date: 20250603
  Transmission Date: 20250717
  Serious: Yes (Other)
  Sender: TAKEDA
  Company Number: CA-TAKEDA-2024TUS061982

PATIENT
  Sex: Male

DRUGS (14)
  1. VEDOLIZUMAB [Suspect]
     Active Substance: VEDOLIZUMAB
     Indication: Colitis ulcerative
  2. VEDOLIZUMAB [Suspect]
     Active Substance: VEDOLIZUMAB
  3. VEDOLIZUMAB [Suspect]
     Active Substance: VEDOLIZUMAB
  4. VEDOLIZUMAB [Suspect]
     Active Substance: VEDOLIZUMAB
  5. VEDOLIZUMAB [Suspect]
     Active Substance: VEDOLIZUMAB
  6. VEDOLIZUMAB [Suspect]
     Active Substance: VEDOLIZUMAB
  7. VEDOLIZUMAB [Suspect]
     Active Substance: VEDOLIZUMAB
  8. Salofalk [Concomitant]
     Dosage: 4 GRAM, QD
     Dates: start: 2023
  9. ALLOPURINOL [Concomitant]
     Active Substance: ALLOPURINOL
  10. FUROSEMIDE [Concomitant]
     Active Substance: FUROSEMIDE
  11. CANDESARTAN [Concomitant]
     Active Substance: CANDESARTAN
  12. SILODOSIN [Concomitant]
     Active Substance: SILODOSIN
  13. APIXABAN [Concomitant]
     Active Substance: APIXABAN
  14. BISOPROLOL [Concomitant]
     Active Substance: BISOPROLOL

REACTIONS (1)
  - Blood pressure increased [Not Recovered/Not Resolved]
